FAERS Safety Report 25552490 (Version 1)
Quarter: 2025Q3

REPORT INFORMATION
  Report Type: Spontaneous
  Country: EU (occurrence: EU)
  Receive Date: 20250715
  Receipt Date: 20250715
  Transmission Date: 20251020
  Serious: Yes (Life-Threatening, Hospitalization)
  Sender: MERCK SHARP & DOHME LLC
  Company Number: None

PATIENT
  Age: 60 Year
  Sex: Female
  Weight: 60 kg

DRUGS (1)
  1. PEMBROLIZUMAB [Suspect]
     Active Substance: PEMBROLIZUMAB
     Indication: Breast cancer stage II
     Dosage: 200 MG EVERY 21 DAYS
     Route: 042
     Dates: start: 20241002, end: 20250409

REACTIONS (1)
  - Encephalitis [Recovered/Resolved with Sequelae]

NARRATIVE: CASE EVENT DATE: 20250301
